FAERS Safety Report 4875048-3 (Version None)
Quarter: 2006Q1

REPORT INFORMATION
  Report Type: 
  Country: None (occurrence: None)
  Receive Date: 20060109
  Receipt Date: 20060103
  Transmission Date: 20060701
  Serious: Yes (Death, Hospitalization)
  Sender: FDA-Public Use
  Company Number: US-JNJFOC-20060100630

PATIENT
  Sex: Male

DRUGS (4)
  1. MS PEPCID AC [Suspect]
  2. MS PEPCID AC [Suspect]
  3. ZANTAC [Suspect]
  4. ORAL DIABETES MEDICATION [Concomitant]

REACTIONS (1)
  - MYOCARDIAL INFARCTION [None]
